FAERS Safety Report 15795731 (Version 2)
Quarter: 2019Q1

REPORT INFORMATION
  Report Type: Spontaneous
  Country: FR (occurrence: FR)
  Receive Date: 20190107
  Receipt Date: 20190123
  Transmission Date: 20190417
  Serious: Yes (Hospitalization)
  Sender: FDA-Public Use
  Company Number: FR-MYLANLABS-2018M1098077

PATIENT
  Age: 53 Year
  Sex: Male
  Weight: 69 kg

DRUGS (4)
  1. DOCETAXEL ACCORD [Suspect]
     Active Substance: DOCETAXEL
     Indication: THROAT CANCER
     Dosage: 133.5 MILLIGRAM, TOTAL
     Route: 041
     Dates: start: 20180514, end: 20180514
  2. CISPLATIN MYLAN [Suspect]
     Active Substance: CISPLATIN
     Indication: THROAT CANCER
     Dosage: 133.5 MILLIGRAM, TOTAL
     Route: 041
     Dates: start: 20180514, end: 20180514
  3. FLUOROURACILE ACCORD [Suspect]
     Active Substance: FLUOROURACIL
     Indication: THROAT CANCER
     Dosage: 5340 MILLIGRAM (OVER 5 DAYS)
     Route: 041
     Dates: start: 20180514, end: 20180518
  4. DALACINE                           /00166004/ [Suspect]
     Active Substance: CLINDAMYCIN PALMITATE HYDROCHLORIDE
     Indication: ALLERGY TEST
     Dosage: UNK, NON PR?CIS?E
     Route: 048
     Dates: start: 20180514, end: 20180514

REACTIONS (3)
  - Pruritus [Recovered/Resolved]
  - Rash [Recovered/Resolved]
  - Face oedema [Recovered/Resolved]

NARRATIVE: CASE EVENT DATE: 20180523
